FAERS Safety Report 7011742-6 (Version None)
Quarter: 2010Q3

REPORT INFORMATION
  Report Type: 
  Country: None (occurrence: None)
  Receive Date: 20100923
  Receipt Date: 20090406
  Transmission Date: 20110219
  Serious: Yes (Hospitalization, Other)
  Sender: FDA-Public Use
  Company Number: US-WYE-H08846409

PATIENT
  Age: 39 Year
  Sex: Female
  Weight: 85.35 kg

DRUGS (2)
  1. PREMARIN [Suspect]
     Indication: HORMONE REPLACEMENT THERAPY
     Dosage: WEANING OFF PRODUCT SLOWLY AND IS AT PRESENT TAKING 0.45MG
     Route: 048
     Dates: start: 20030701
  2. ZESTORETIC [Concomitant]
     Dosage: UNKNOWN
     Route: 065

REACTIONS (1)
  - CEREBROVASCULAR ACCIDENT [None]
